FAERS Safety Report 5245825-8 (Version None)
Quarter: 2007Q1

REPORT INFORMATION
  Report Type: 
  Country: None (occurrence: None)
  Receive Date: 20070216
  Receipt Date: 20070207
  Transmission Date: 20070707
  Serious: Yes (Hospitalization)
  Sender: FDA-Public Use
  Company Number: 2005BI001242

PATIENT
  Age: 50 Year
  Sex: Male

DRUGS (2)
  1. AVONEX [Suspect]
     Indication: MULTIPLE SCLEROSIS
     Dosage: 30 UG; QW; IM
     Route: 030
     Dates: start: 19990101
  2. AVONEX [Suspect]
     Indication: MULTIPLE SCLEROSIS
     Dosage: 30 UG; QW; IM
     Route: 030
     Dates: start: 20040101

REACTIONS (8)
  - CONDITION AGGRAVATED [None]
  - DRUG DOSE OMISSION [None]
  - ECONOMIC PROBLEM [None]
  - FALL [None]
  - HIP FRACTURE [None]
  - ILL-DEFINED DISORDER [None]
  - MULTIPLE SCLEROSIS [None]
  - TREATMENT NONCOMPLIANCE [None]
